FAERS Safety Report 15114873 (Version 3)
Quarter: 2018Q3

REPORT INFORMATION
  Report Type: Spontaneous
  Country: US (occurrence: US)
  Receive Date: 20180706
  Receipt Date: 20180919
  Transmission Date: 20181010
  Serious: Yes (Other)
  Sender: FDA-Public Use
  Company Number: US-PURDUE-USA-2018-0144077

PATIENT
  Age: 61 Year
  Sex: Female

DRUGS (3)
  1. OXYCODONE/ ACETAMINOPHEN TABLETS [Suspect]
     Active Substance: ACETAMINOPHEN\OXYCODONE HYDROCHLORIDE
     Indication: RIB FRACTURE
     Dosage: 10 MG/650 MG (2X 5 MG/325 MG) TABLET, QID
     Route: 048
     Dates: start: 201708, end: 201709
  2. OXYCODONE/ ACETAMINOPHEN TABLETS [Suspect]
     Active Substance: ACETAMINOPHEN\OXYCODONE HYDROCHLORIDE
     Indication: SURGERY
  3. OXYCODONE/ ACETAMINOPHEN TABLETS [Suspect]
     Active Substance: ACETAMINOPHEN\OXYCODONE HYDROCHLORIDE
     Indication: JOINT INJURY
     Dosage: 5 MG/325 MG TABLET
     Route: 048
     Dates: start: 2011

REACTIONS (11)
  - Rectal fissure [Unknown]
  - Rectocele [Not Recovered/Not Resolved]
  - Product use issue [Recovered/Resolved]
  - Hysterectomy [Recovered/Resolved]
  - Colon injury [Unknown]
  - Pain [Recovered/Resolved]
  - Bladder operation [Recovered/Resolved]
  - Feeling abnormal [Recovered/Resolved]
  - Incorrect dose administered [Recovered/Resolved]
  - Impaired driving ability [Unknown]
  - Road traffic accident [Unknown]

NARRATIVE: CASE EVENT DATE: 201708
